FAERS Safety Report 7680299-9 (Version None)
Quarter: 2011Q3

REPORT INFORMATION
  Report Type: 
  Country: None (occurrence: None)
  Receive Date: 20110812
  Receipt Date: 20110729
  Transmission Date: 20111222
  Serious: Yes (Congenital Anomaly)
  Sender: FDA-Public Use
  Company Number: US-GLAXOSMITHKLINE-A0874695A

PATIENT
  Sex: Male

DRUGS (1)
  1. PAXIL [Suspect]
     Indication: DEPRESSION
     Route: 064

REACTIONS (4)
  - TESTICULAR TORSION [None]
  - SUPRAVALVULAR AORTIC STENOSIS [None]
  - MATERNAL EXPOSURE DURING PREGNANCY [None]
  - HEART DISEASE CONGENITAL [None]
